FAERS Safety Report 15559884 (Version 1)
Quarter: 2018Q4

REPORT INFORMATION
  Report Type: Spontaneous
  Country: US (occurrence: US)
  Receive Date: 20181027
  Receipt Date: 20181027
  Transmission Date: 20190205
  Serious: Yes (Other)
  Sender: FDA-Public Use
  Company Number: None

PATIENT
  Age: 55 Year
  Sex: Female
  Weight: 50.4 kg

DRUGS (14)
  1. PROLIA [Suspect]
     Active Substance: DENOSUMAB
     Indication: OSTEOPOROSIS
     Dosage: TWICE A YEAR; INTRAMUSCULAR
     Route: 030
     Dates: start: 20170122, end: 20171222
  2. DUCOSATE SODIUM [Concomitant]
  3. VITAMIN [Concomitant]
     Active Substance: VITAMINS
  4. MIRALAX [Concomitant]
     Active Substance: POLYETHYLENE GLYCOL 3350
  5. FLAXSEED [Concomitant]
     Active Substance: FLAX SEED
  6. RUBUS FRUCTICOSUS [Concomitant]
  7. NEURONTIN [Concomitant]
     Active Substance: GABAPENTIN
  8. COD LIVER OIL [Concomitant]
     Active Substance: COD LIVER OIL
  9. BIOPLASMA [Concomitant]
     Active Substance: HOMEOPATHICS
  10. TENS UNIT [Concomitant]
  11. RELAX/MAX [Concomitant]
  12. PROBIOTIC [Concomitant]
     Active Substance: PROBIOTICS NOS
  13. CAL/MAG [Concomitant]
  14. VITAMIN D [Concomitant]
     Active Substance: CHOLECALCIFEROL

REACTIONS (1)
  - Temporomandibular joint syndrome [None]

NARRATIVE: CASE EVENT DATE: 20171227
